FAERS Safety Report 14027479 (Version 9)
Quarter: 2019Q3

REPORT INFORMATION
  Report Type: Report from Study
  Country: US (occurrence: US)
  Receive Date: 20170929
  Receipt Date: 20190708
  Transmission Date: 20191004
  Serious: Yes (Hospitalization, Other)
  Sender: FDA-Public Use
  Company Number: US-TESARO, INC-US-2017TSO02781

PATIENT
  Age: 73 Year
  Sex: Female
  Weight: 48 kg

DRUGS (7)
  1. ZEJULA [Suspect]
     Active Substance: NIRAPARIB
     Dosage: 100 MG, QD
     Route: 048
     Dates: start: 20180904
  2. ZEJULA [Suspect]
     Active Substance: NIRAPARIB
     Dosage: 200 MG, QD
     Route: 048
     Dates: start: 20180615
  3. FENTANYL. [Concomitant]
     Active Substance: FENTANYL
     Indication: BACK PAIN
  4. ZEJULA [Suspect]
     Active Substance: NIRAPARIB
     Indication: OVARIAN CANCER
     Dosage: 300 MG, QD
     Route: 048
     Dates: start: 20170824, end: 2017
  5. DULCOLAX (BISACODYL) [Concomitant]
     Active Substance: BISACODYL
     Indication: DIARRHOEA
  6. ZEJULA [Suspect]
     Active Substance: NIRAPARIB
     Dosage: 100 MG, DAILY
     Route: 048
  7. FENTANYL. [Concomitant]
     Active Substance: FENTANYL
     Indication: PAIN IN EXTREMITY

REACTIONS (17)
  - Peripheral coldness [Unknown]
  - Anaemia [Not Recovered/Not Resolved]
  - Product dose omission [Unknown]
  - Thrombocytopenia [Not Recovered/Not Resolved]
  - Feeling abnormal [Recovered/Resolved]
  - White blood cell count decreased [Not Recovered/Not Resolved]
  - Haemoglobin decreased [Recovering/Resolving]
  - Neutropenia [Not Recovered/Not Resolved]
  - Diarrhoea [Unknown]
  - Hospitalisation [Not Recovered/Not Resolved]
  - Fatigue [Not Recovered/Not Resolved]
  - Insomnia [Not Recovered/Not Resolved]
  - Neuropathy peripheral [Not Recovered/Not Resolved]
  - Arthralgia [Recovered/Resolved]
  - Hernia [Unknown]
  - Pain in extremity [Unknown]
  - Constipation [Not Recovered/Not Resolved]

NARRATIVE: CASE EVENT DATE: 2017
